FAERS Safety Report 5445903-4 (Version None)
Quarter: 2007Q3

REPORT INFORMATION
  Report Type: 
  Country: None (occurrence: None)
  Receive Date: 20070904
  Receipt Date: 20070821
  Transmission Date: 20080115
  Serious: Yes (Hospitalization, Other)
  Sender: FDA-Public Use
  Company Number: 2007US-09542

PATIENT
  Age: 89 Year
  Sex: Female

DRUGS (13)
  1. ISOPTIN SR [Suspect]
     Indication: ATRIAL FIBRILLATION
     Dosage: 60 MG, ONCE AS AN EXTRA DOSE, ORAL; 60 MG, QD, ORAL; 40 MG, QD, ORAL
     Route: 048
     Dates: start: 20070324, end: 20070324
  2. ISOPTIN SR [Suspect]
     Indication: ATRIAL FLUTTER
     Dosage: 60 MG, ONCE AS AN EXTRA DOSE, ORAL; 60 MG, QD, ORAL; 40 MG, QD, ORAL
     Route: 048
     Dates: start: 20070324, end: 20070324
  3. ISOPTIN SR [Suspect]
     Indication: ATRIAL FIBRILLATION
     Dosage: 60 MG, ONCE AS AN EXTRA DOSE, ORAL; 60 MG, QD, ORAL; 40 MG, QD, ORAL
     Route: 048
     Dates: end: 20070324
  4. ISOPTIN SR [Suspect]
     Indication: ATRIAL FLUTTER
     Dosage: 60 MG, ONCE AS AN EXTRA DOSE, ORAL; 60 MG, QD, ORAL; 40 MG, QD, ORAL
     Route: 048
     Dates: end: 20070324
  5. METOPROLOL SUCCINATE [Suspect]
     Indication: ATRIAL FIBRILLATION
     Dosage: 50 MG, ONE DOSE, INTRAVENOUS
     Route: 042
     Dates: start: 20070324, end: 20070324
  6. METOPROLOL SUCCINATE [Suspect]
     Indication: ATRIAL FLUTTER
     Dosage: 50 MG, ONE DOSE, INTRAVENOUS
     Route: 042
     Dates: start: 20070324, end: 20070324
  7. TIATRAL [Concomitant]
  8. GABAPENTIN [Concomitant]
  9. RAN-RISPERIDONE (RISPERIDONE) [Concomitant]
  10. VENLAFAXINE HCI [Concomitant]
  11. FLUNITRAZEPAM [Concomitant]
  12. PANTOPRAZOLE SODIUM [Concomitant]
  13. ELTROXIN [Concomitant]

REACTIONS (11)
  - ASTHENIA [None]
  - BRADYCARDIA [None]
  - CARDIAC MURMUR [None]
  - DRUG INTERACTION [None]
  - DYSPNOEA [None]
  - HEART RATE INCREASED [None]
  - HEART RATE IRREGULAR [None]
  - MALAISE [None]
  - PALPITATIONS [None]
  - PULSE ABNORMAL [None]
  - SINUS ARREST [None]
